FAERS Safety Report 4702785-3 (Version None)
Quarter: 2005Q2

REPORT INFORMATION
  Report Type: 
  Country: None (occurrence: None)
  Receive Date: 20050629
  Receipt Date: 20050310
  Transmission Date: 20051028
  Serious: Yes (Hospitalization, Other)
  Sender: FDA-Public Use
  Company Number: US-MERCK-0503USA02084

PATIENT
  Age: 58 Year
  Sex: Male
  Weight: 100 kg

DRUGS (9)
  1. VIOXX [Suspect]
     Indication: ARTHRITIS
     Route: 048
     Dates: start: 20010326, end: 20040204
  2. VIOXX [Suspect]
     Route: 048
     Dates: start: 20010326, end: 20040204
  3. VIOXX [Suspect]
     Indication: BACK PAIN
     Route: 048
     Dates: start: 20010326, end: 20040204
  4. VIOXX [Suspect]
     Route: 048
     Dates: start: 20010326, end: 20040204
  5. DEPAKOTE [Concomitant]
     Route: 065
  6. KEPPRA [Concomitant]
     Indication: CONVULSION
     Route: 065
     Dates: start: 19930101
  7. TYLENOL W/ CODEINE NO. 3 [Concomitant]
     Route: 065
  8. FLOMAX [Concomitant]
     Route: 065
  9. [THERAPY UNSPECIFIED] [Concomitant]
     Route: 065

REACTIONS (22)
  - ANGINA PECTORIS [None]
  - BLADDER DISORDER [None]
  - BUNDLE BRANCH BLOCK RIGHT [None]
  - CEREBROVASCULAR ACCIDENT [None]
  - COLONIC POLYP [None]
  - CONVULSION [None]
  - CORONARY ARTERY ATHEROSCLEROSIS [None]
  - CORONARY ARTERY DISEASE [None]
  - CORONARY ARTERY OCCLUSION [None]
  - CORONARY ARTERY STENOSIS [None]
  - DIFFICULTY IN WALKING [None]
  - GASTROINTESTINAL DISORDER [None]
  - HEART INJURY [None]
  - HYPERCHOLESTEROLAEMIA [None]
  - HYPERLIPIDAEMIA [None]
  - HYPERTENSION [None]
  - MYOCARDIAL INFARCTION [None]
  - NASAL CONGESTION [None]
  - SEDATION [None]
  - SIALOADENITIS [None]
  - SINUS BRADYCARDIA [None]
  - TRANSIENT ISCHAEMIC ATTACK [None]
